FAERS Safety Report 5323140-1 (Version None)
Quarter: 2007Q1

REPORT INFORMATION
  Report Type: 
  Country: None (occurrence: None)
  Receive Date: 20070220
  Receipt Date: 20061122
  Transmission Date: 20070707
  Serious: No
  Sender: FDA-Public Use
  Company Number: WAES 0611USA06378

PATIENT
  Age: 69 Year
  Sex: Female

DRUGS (2)
  1. JANUVIA [Suspect]
     Dosage: PO
     Route: 048
     Dates: start: 20061031, end: 20061107
  2. AMBIEN [Concomitant]

REACTIONS (3)
  - CHEST DISCOMFORT [None]
  - HEADACHE [None]
  - UPPER RESPIRATORY TRACT INFECTION [None]
